FAERS Safety Report 14591007 (Version 1)
Quarter: 2018Q1

REPORT INFORMATION
  Report Type: Spontaneous
  Country: US (occurrence: US)
  Receive Date: 20180301
  Receipt Date: 20180301
  Transmission Date: 20180509
  Serious: Yes (Hospitalization)
  Sender: FDA-Public Use
  Company Number: None

PATIENT
  Age: 80 Year
  Sex: Male
  Weight: 73 kg

DRUGS (12)
  1. BREO 1 PUFF DAILY [Concomitant]
  2. WARFARIN [Suspect]
     Active Substance: WARFARIN
     Indication: DEEP VEIN THROMBOSIS
     Route: 048
  3. INSULIN DETEMIR 12 UNITS DAILY [Concomitant]
  4. GLUCOSAMINE CHONDROITIN 2 TABLETS DAILY [Concomitant]
  5. TIOTROPIUM 1 PUFF DAILY [Concomitant]
  6. DUONEBS 4 TIMES DAILY [Concomitant]
  7. FUROSEMIDE 40 MG 4 TIMES WEEKLY [Concomitant]
  8. CACITRIOL 0.25 MG WEEKLY [Concomitant]
  9. METOPROLOL 12.5 MG TWICE DAILY [Concomitant]
  10. MIRALAX 17 GM DAILY AS NEEDED [Concomitant]
  11. COMBIVENT 1 PUFF EVERY 4 HOURS PRN [Concomitant]
  12. GUAIFENESIN DM 30/600 TWICE DAILY [Concomitant]

REACTIONS (6)
  - Gastrointestinal haemorrhage [None]
  - Haemoglobin decreased [None]
  - Tachycardia [None]
  - Cough [None]
  - Dyspnoea [None]
  - Hypotension [None]

NARRATIVE: CASE EVENT DATE: 20170423
